FAERS Safety Report 14529929 (Version 1)
Quarter: 2018Q1

REPORT INFORMATION
  Report Type: Spontaneous
  Country: US (occurrence: US)
  Receive Date: 20180214
  Receipt Date: 20180214
  Transmission Date: 20180509
  Serious: No
  Sender: FDA-Public Use
  Company Number: US-IGSA-SR10005067

PATIENT
  Age: 60 Year
  Sex: Male
  Weight: 143 kg

DRUGS (15)
  1. PROLASTIN-C [Suspect]
     Active Substance: .ALPHA.1-PROTEINASE INHIBITOR HUMAN
     Indication: ALPHA-1 ANTI-TRYPSIN DEFICIENCY
     Dosage: 8580 MG, Q.WK.
     Route: 042
     Dates: start: 20170710
  2. PROLASTIN-C [Suspect]
     Active Substance: .ALPHA.1-PROTEINASE INHIBITOR HUMAN
     Dosage: 8580 MG, Q.WK.
     Route: 042
     Dates: start: 20170717
  3. BUDESONIDE. [Concomitant]
     Active Substance: BUDESONIDE
  4. ALBUTEROL                          /00139501/ [Concomitant]
     Active Substance: ALBUTEROL
  5. FOLIC ACID. [Concomitant]
     Active Substance: FOLIC ACID
  6. CYANOCOBALAMIN. [Concomitant]
     Active Substance: CYANOCOBALAMIN
  7. BENADRYL [Concomitant]
     Active Substance: DIPHENHYDRAMINE HYDROCHLORIDE
     Indication: PREMEDICATION
     Dosage: UNK UNK, Q.WK.
     Route: 042
     Dates: start: 2017
  8. MULTIVITAMINS [Concomitant]
     Active Substance: VITAMINS
  9. GABAPENTIN. [Concomitant]
     Active Substance: GABAPENTIN
  10. METHOCARBAMOL MITA [Concomitant]
  11. LISINOPRIL. [Concomitant]
     Active Substance: LISINOPRIL
  12. PROLASTIN-C [Suspect]
     Active Substance: .ALPHA.1-PROTEINASE INHIBITOR HUMAN
     Dosage: 8580 MG, Q.WK.
     Route: 042
     Dates: start: 20170731
  13. OMEPRAZOLE. [Concomitant]
     Active Substance: OMEPRAZOLE
  14. PROLASTIN-C [Suspect]
     Active Substance: .ALPHA.1-PROTEINASE INHIBITOR HUMAN
     Dosage: 8580 MG, Q.WK.
     Route: 042
     Dates: start: 20170724
  15. OXYCODONE [Concomitant]
     Active Substance: OXYCODONE

REACTIONS (4)
  - Pruritus [Recovered/Resolved]
  - Dizziness [Not Recovered/Not Resolved]
  - Irritability [Not Recovered/Not Resolved]
  - Fatigue [Not Recovered/Not Resolved]

NARRATIVE: CASE EVENT DATE: 2017
